FAERS Safety Report 10575509 (Version 1)
Quarter: 2014Q4

REPORT INFORMATION
  Report Type: Spontaneous
  Country: US (occurrence: US)
  Receive Date: 20141111
  Receipt Date: 20141111
  Transmission Date: 20150529
  Serious: No
  Sender: FDA-Public Use
  Company Number: US-009507513-1410USA015550

PATIENT
  Sex: Female
  Weight: 66.67 kg

DRUGS (1)
  1. NEXPLANON [Suspect]
     Active Substance: ETONOGESTREL
     Dosage: UNK
     Dates: start: 20140715

REACTIONS (5)
  - Device breakage [Not Recovered/Not Resolved]
  - Product quality issue [Unknown]
  - Device kink [Not Recovered/Not Resolved]
  - Device malfunction [Unknown]
  - No adverse event [Unknown]
